FAERS Safety Report 4444986-8 (Version None)
Quarter: 2004Q3

REPORT INFORMATION
  Report Type: 
  Country: None (occurrence: None)
  Receive Date: 20040908
  Receipt Date: 20040908
  Transmission Date: 20050211
  Serious: Yes (Other)
  Sender: FDA-Public Use
  Company Number: None

PATIENT
  Sex: Female
  Weight: 75.5239 kg

DRUGS (12)
  1. FLUTAMIDE [Suspect]
     Indication: ANDROGENS INCREASED
     Dosage: BID
     Dates: start: 20040827
  2. TRAZODONE HCL [Concomitant]
  3. NEXIUM [Concomitant]
  4. B12 [Concomitant]
  5. TOPAMAX [Concomitant]
  6. NEURONTIN [Concomitant]
  7. HYDROMORPHOE [Concomitant]
  8. CELEBREX [Concomitant]
  9. MIRALOX [Concomitant]
  10. EPIPEN [Concomitant]
  11. ALBUTEROL [Concomitant]
  12. AZMACORT [Concomitant]

REACTIONS (2)
  - CHROMATURIA [None]
  - OEDEMA PERIPHERAL [None]
